FAERS Safety Report 5251231-2 (Version None)
Quarter: 2007Q1

REPORT INFORMATION
  Report Type: 
  Country: None (occurrence: None)
  Receive Date: 20070228
  Receipt Date: 20070118
  Transmission Date: 20070707
  Serious: No
  Sender: FDA-Public Use
  Company Number: US-GLAXOSMITHKLINE-A0631170A

PATIENT
  Age: 51 Year
  Sex: Female

DRUGS (8)
  1. LAMICTAL [Suspect]
     Indication: BIPOLAR DISORDER
     Route: 048
     Dates: start: 20060530, end: 20061201
  2. CRESTOR [Concomitant]
  3. TOPAMAX [Concomitant]
  4. NEURONTIN [Concomitant]
  5. LEVOXYL [Concomitant]
  6. KLONOPIN [Concomitant]
  7. AMBIEN [Concomitant]
  8. CELEXA [Concomitant]

REACTIONS (8)
  - GENITAL LESION [None]
  - LYMPHADENOPATHY [None]
  - NASAL OEDEMA [None]
  - NASAL ULCER [None]
  - SOMNOLENCE [None]
  - VAGINAL DISCHARGE [None]
  - VAGINAL SWELLING [None]
  - WOUND SECRETION [None]
